FAERS Safety Report 7328113-5 (Version None)
Quarter: 2011Q1

REPORT INFORMATION
  Report Type: 
  Country: None (occurrence: None)
  Receive Date: 20110303
  Receipt Date: 20110217
  Transmission Date: 20110831
  Serious: Yes (Hospitalization, Other)
  Sender: FDA-Public Use
  Company Number: PHHY2011AU05252

PATIENT
  Sex: Male

DRUGS (2)
  1. CLOZARIL [Suspect]
     Dosage: 300 MG, UNK
     Dates: start: 20090526
  2. CLOZARIL [Suspect]
     Dosage: 150 MG, UNK

REACTIONS (3)
  - MENTAL DISORDER [None]
  - ANXIETY [None]
  - SELF-INJURIOUS IDEATION [None]
